FAERS Safety Report 18278380 (Version 2)
Quarter: 2021Q2

REPORT INFORMATION
  Report Type: Other
  Country: JP (occurrence: JP)
  Receive Date: 20200917
  Receipt Date: 20210401
  Transmission Date: 20210717
  Serious: Yes (Other)
  Sender: FDA-Public Use
  Company Number: JP-ROCHE-2679461

PATIENT
  Age: 76 Year
  Sex: Female
  Weight: 45 kg

DRUGS (11)
  1. GRANULOCYTE COLONY STIMULATING FACTOR [Concomitant]
     Active Substance: GRANULOCYTE COLONY-STIMULATING FACTOR NOS
  2. PREDNISOLONE. [Concomitant]
     Active Substance: PREDNISOLONE
  3. ETANERCEPT [Concomitant]
     Active Substance: ETANERCEPT
  4. METHOTREXATE. [Concomitant]
     Active Substance: METHOTREXATE
  5. METHYLPREDNISOLONE. [Concomitant]
     Active Substance: METHYLPREDNISOLONE
  6. CYCLOSPORINE. [Concomitant]
     Active Substance: CYCLOSPORINE
  7. ETOPOSIDE. [Concomitant]
     Active Substance: ETOPOSIDE
  8. PREDNISOLONE. [Concomitant]
     Active Substance: PREDNISOLONE
  9. DEXAMETHASONE. [Concomitant]
     Active Substance: DEXAMETHASONE
     Route: 042
  10. TOCILIZUMAB. [Suspect]
     Active Substance: TOCILIZUMAB
     Indication: STILL^S DISEASE
     Route: 042
  11. GANCICLOVIR. [Concomitant]
     Active Substance: GANCICLOVIR

REACTIONS (2)
  - Haemophagocytic lymphohistiocytosis [Recovered/Resolved]
  - Off label use [Unknown]
